FAERS Safety Report 10401268 (Version 2)
Quarter: 2014Q3

REPORT INFORMATION
  Report Type: Report from Study
  Country: HU (occurrence: HU)
  Receive Date: 20140822
  Receipt Date: 20140918
  Transmission Date: 20150326
  Serious: Yes (Hospitalization)
  Sender: FDA-Public Use
  Company Number: HU-BIOGENIDEC-2014BI082300

PATIENT
  Age: 40 Year
  Sex: Male

DRUGS (1)
  1. TECFIDERA [Suspect]
     Active Substance: DIMETHYL FUMARATE
     Indication: MULTIPLE SCLEROSIS
     Route: 048
     Dates: start: 20140606

REACTIONS (3)
  - Multiple sclerosis [Not Recovered/Not Resolved]
  - Multiple sclerosis relapse [Unknown]
  - Brain mass [Unknown]

NARRATIVE: CASE EVENT DATE: 20140608
